FAERS Safety Report 9818957 (Version 1)
Quarter: 2014Q1

REPORT INFORMATION
  Report Type: Spontaneous
  Country: US (occurrence: None)
  Receive Date: 20140114
  Receipt Date: 20140114
  Transmission Date: 20141002
  Serious: No
  Sender: FDA-Public Use
  Company Number: None

PATIENT
  Age: 65 Year
  Sex: Male
  Weight: 111.6 kg

DRUGS (2)
  1. CARBOPLATIN [Suspect]
     Dates: end: 20140106
  2. PACLITAXEL(TAXOL) [Suspect]
     Dates: end: 20140106

REACTIONS (4)
  - Palpitations [None]
  - Dyspnoea [None]
  - Atrial fibrillation [None]
  - Diarrhoea [None]
